FAERS Safety Report 21453235 (Version 1)
Quarter: 2022Q4

REPORT INFORMATION
  Report Type: Spontaneous
  Country: US (occurrence: None)
  Receive Date: 20221012
  Receipt Date: 20221012
  Transmission Date: 20230112
  Serious: Yes (Death)
  Sender: FDA-Public Use
  Company Number: None

PATIENT
  Age: 67 Year
  Sex: Male

DRUGS (10)
  1. ZARXIO [Suspect]
     Active Substance: FILGRASTIM-SNDZ
     Indication: Neoplasm
     Dosage: OTHER STRENGTH : 480 MCG/0.8ML;?OTHER QUANTITY : 438.6 MCG;?FREQUENCY : DAILY;?
     Route: 042
     Dates: start: 202209
  2. LEUCOVORIN [Suspect]
     Active Substance: LEUCOVORIN
     Indication: Neoplasm
     Dosage: FREQUENCY : DAILY;?
     Route: 042
     Dates: start: 202209
  3. CISPLATIN [Concomitant]
     Active Substance: CISPLATIN
  4. DEXAMETHASONE [Concomitant]
     Active Substance: DEXAMETHASONE
  5. DOCETAXEL [Concomitant]
     Active Substance: DOCETAXEL
  6. FLUOROURACIL [Concomitant]
     Active Substance: FLUOROURACIL
  7. LEUCOVORIN [Concomitant]
     Active Substance: LEUCOVORIN
  8. LIOTHYRONINE [Concomitant]
     Active Substance: LIOTHYRONINE
  9. NEUPOGEN [Concomitant]
     Active Substance: FILGRASTIM
  10. ZOFRAN [Concomitant]
     Active Substance: ONDANSETRON HYDROCHLORIDE

REACTIONS (1)
  - Death [None]
